FAERS Safety Report 16577600 (Version 1)
Quarter: 2019Q3

REPORT INFORMATION
  Report Type: Spontaneous
  Country: CN (occurrence: CN)
  Receive Date: 20190716
  Receipt Date: 20190716
  Transmission Date: 20191004
  Serious: Yes (Hospitalization, Other)
  Sender: FDA-Public Use
  Company Number: CN-PFIZER INC-2019298813

PATIENT
  Age: 66 Year
  Sex: Female
  Weight: 75 kg

DRUGS (2)
  1. LIPITOR [Suspect]
     Active Substance: ATORVASTATIN CALCIUM
     Indication: LACUNAR INFARCTION
     Dosage: 20 MG, 1X/DAY
     Route: 048
     Dates: start: 20190410, end: 20190517
  2. HERBAL NOS [Concomitant]
     Active Substance: HERBALS
     Indication: TENSION HEADACHE
     Dosage: 1 G, 1X/DAY
     Route: 048
     Dates: start: 20190516, end: 20190520

REACTIONS (2)
  - Tension headache [Unknown]
  - Hepatic function abnormal [Recovering/Resolving]

NARRATIVE: CASE EVENT DATE: 20190517
